FAERS Safety Report 13545744 (Version 1)
Quarter: 2017Q2

REPORT INFORMATION
  Report Type: Spontaneous
  Country: US (occurrence: US)
  Receive Date: 20170515
  Receipt Date: 20170515
  Transmission Date: 20170830
  Serious: Yes (Other)
  Sender: FDA-Public Use
  Company Number: US-TEVA-694452USA

PATIENT
  Sex: Female

DRUGS (3)
  1. GILENYA [Suspect]
     Active Substance: FINGOLIMOD HYDROCHLORIDE
     Route: 065
  2. COPAXONE [Suspect]
     Active Substance: GLATIRAMER ACETATE
     Dosage: UNKNOWN FORM OF STRENGTH
     Route: 058
  3. BETA SERON (ALBUMIN HUMAN\DEXTROSE\INTERFERON BETA) [Suspect]
     Active Substance: ALBUMIN HUMAN\DEXTROSE\INTERFERON BETA
     Route: 065

REACTIONS (5)
  - Multiple sclerosis relapse [Unknown]
  - Injection site reaction [Unknown]
  - Multiple sclerosis plaque [Unknown]
  - Multiple sclerosis [Unknown]
  - Adverse event [Unknown]
